FAERS Safety Report 5894056-7 (Version None)
Quarter: 2008Q3

REPORT INFORMATION
  Report Type: 
  Country: None (occurrence: None)
  Receive Date: 20080923
  Receipt Date: 20080915
  Transmission Date: 20090109
  Serious: Yes (Hospitalization)
  Sender: FDA-Public Use
  Company Number: US-ELI_LILLY_AND_COMPANY-US200809003598

PATIENT
  Sex: Female
  Weight: 73.016 kg

DRUGS (9)
  1. BYETTA [Suspect]
     Indication: DIABETES MELLITUS
     Dosage: 5 UG, 2/D
     Route: 058
     Dates: start: 20050101, end: 20050101
  2. BYETTA [Suspect]
     Dosage: 10 UG, 2/D
     Route: 058
     Dates: start: 20050101, end: 20080801
  3. BYETTA [Suspect]
     Dosage: 10 UG, 2/D
     Route: 058
     Dates: start: 20080909
  4. METFORMIN HCL [Concomitant]
     Indication: DIABETES MELLITUS
     Dates: end: 20080801
  5. METFORMIN HCL [Concomitant]
     Dates: start: 20080801
  6. FOLIC ACID [Concomitant]
  7. LOVAZA [Concomitant]
  8. VITAMINS NOS [Concomitant]
  9. CALCIUM GLUCONATE [Concomitant]

REACTIONS (9)
  - BLOOD GLUCOSE INCREASED [None]
  - GASTRITIS [None]
  - HAEMATOCHEZIA [None]
  - MUSCULAR WEAKNESS [None]
  - NAUSEA [None]
  - OEDEMA PERIPHERAL [None]
  - VISION BLURRED [None]
  - VOMITING [None]
  - WEIGHT INCREASED [None]
